FAERS Safety Report 4825010-1 (Version None)
Quarter: 2005Q4

REPORT INFORMATION
  Report Type: 
  Country: None (occurrence: None)
  Receive Date: 20051108
  Receipt Date: 20051026
  Transmission Date: 20060501
  Serious: Yes (Death)
  Sender: FDA-Public Use
  Company Number: 218999

PATIENT
  Sex: Male

DRUGS (5)
  1. MABTHERA(RITUXIMAB) CONC FOR SOLUTION FOR INFUSION [Suspect]
     Indication: CASTLEMAN'S DISEASE
     Dosage: 375 MG/M2, 4/WEEK,UNK
     Route: 065
  2. VINBLASTINE SULFATE [Concomitant]
  3. EFAVIRENZ [Concomitant]
  4. AMPRENAVIR (AMPRENAVIR) [Concomitant]
  5. LOPINAVIR (LOPINAVIR) [Concomitant]

REACTIONS (7)
  - ACUTE RESPIRATORY DISTRESS SYNDROME [None]
  - HISTIOCYTOSIS HAEMATOPHAGIC [None]
  - LACTIC ACIDOSIS [None]
  - MULTI-ORGAN DISORDER [None]
  - MYELOCYTOSIS [None]
  - PLASMACYTOSIS [None]
  - WHITE BLOOD CELL COUNT INCREASED [None]
